FAERS Safety Report 25096009 (Version 1)
Quarter: 2025Q1

REPORT INFORMATION
  Report Type: Spontaneous
  Country: ES (occurrence: ES)
  Receive Date: 20250319
  Receipt Date: 20250319
  Transmission Date: 20250409
  Serious: Yes (Hospitalization)
  Sender: TEVA
  Company Number: ES-TEVA-VS-3309703

PATIENT
  Age: 72 Year
  Sex: Male

DRUGS (2)
  1. VORICONAZOLE [Interacting]
     Active Substance: VORICONAZOLE
     Indication: Antifungal treatment
     Route: 042
  2. METAMIZOLE [Interacting]
     Active Substance: METAMIZOLE
     Indication: Back pain
     Route: 042

REACTIONS (2)
  - Drug interaction [Unknown]
  - Drug level decreased [Unknown]
